FAERS Safety Report 7292807-0 (Version None)
Quarter: 2011Q1

REPORT INFORMATION
  Report Type: 
  Country: None (occurrence: None)
  Receive Date: 20110215
  Receipt Date: 20110202
  Transmission Date: 20110831
  Serious: Yes (Hospitalization, Other)
  Sender: FDA-Public Use
  Company Number: US-ELI_LILLY_AND_COMPANY-US201009002876

PATIENT
  Sex: Female

DRUGS (15)
  1. ZOCOR [Concomitant]
     Dosage: UNK, UNKNOWN
     Route: 065
  2. LOPID [Concomitant]
     Dosage: UNK, UNKNOWN
     Route: 065
  3. PLAVIX [Concomitant]
     Dosage: UNK, UNKNOWN
     Route: 065
  4. ISORBIDE [Concomitant]
     Dosage: UNK, UNKNOWN
     Route: 065
  5. TYLENOL WITH CODEIN #4 [Concomitant]
  6. THEO-DUR [Concomitant]
     Dosage: UNK, UNKNOWN
     Route: 065
  7. ESTRADIOL [Concomitant]
     Dosage: UNK, UNKNOWN
     Route: 065
  8. GUAIFENESIN AND PSEUDOEPHEDRINE HYDROCHLORIDE [Concomitant]
     Indication: SINUS DISORDER
     Dosage: UNK, UNKNOWN
     Route: 065
  9. XANAX [Concomitant]
     Dosage: UNK, UNKNOWN
     Route: 065
  10. SYNTHROID [Concomitant]
     Dosage: UNK, UNKNOWN
     Route: 065
  11. FLONASE [Concomitant]
     Dosage: UNK, UNKNOWN
     Route: 065
  12. VENTOLIN [Concomitant]
     Dosage: UNK, UNKNOWN
     Route: 065
  13. FORTEO [Suspect]
     Indication: OSTEOPOROSIS
     Dosage: 20 UG, DAILY (1/D)
     Route: 058
     Dates: start: 20100601, end: 20100801
  14. FORTEO [Suspect]
     Dosage: 20 UG, DAILY (1/D)
     Dates: start: 20100831
  15. TOPRAL [Concomitant]
     Dosage: UNK, UNKNOWN
     Route: 065

REACTIONS (2)
  - RENAL CELL CARCINOMA [None]
  - PNEUMONIA [None]
